FAERS Safety Report 9009314 (Version 2)
Quarter: 2013Q1

REPORT INFORMATION
  Report Type: Spontaneous
  Country: US (occurrence: US)
  Receive Date: 20130111
  Receipt Date: 20130301
  Transmission Date: 20140127
  Serious: Yes (Death, Hospitalization, Other)
  Sender: FDA-Public Use
  Company Number: US-ABBOTT-13P-163-1033199-00

PATIENT
  Age: 78 None
  Sex: Female

DRUGS (39)
  1. HUMIRA [Suspect]
     Indication: RHEUMATOID ARTHRITIS
     Route: 058
     Dates: start: 20120618, end: 20121130
  2. TYLENOL [Concomitant]
     Indication: PRODUCT USED FOR UNKNOWN INDICATION
     Dates: end: 20121130
  3. ALENDRONATE [Concomitant]
     Indication: PRODUCT USED FOR UNKNOWN INDICATION
     Route: 048
     Dates: end: 20121215
  4. ALPRAZOLAM [Concomitant]
     Indication: ANXIETY
     Route: 048
     Dates: end: 20121227
  5. GAVISCON [Concomitant]
     Indication: PRODUCT USED FOR UNKNOWN INDICATION
     Dosage: 254-237.5 MG/5ML
     Dates: end: 20121228
  6. CALCIUM CARBONATE AND VITAMIN D [Concomitant]
     Indication: OSTEOPOROSIS
     Dosage: 600MG (1500MG)
     Dates: end: 20121227
  7. FUROSEMIDE [Concomitant]
     Indication: PRODUCT USED FOR UNKNOWN INDICATION
     Route: 048
     Dates: end: 20121228
  8. LOPERAMIDE [Concomitant]
     Indication: PRODUCT USED FOR UNKNOWN INDICATION
  9. OMEPRAZOLE [Concomitant]
     Indication: PRODUCT USED FOR UNKNOWN INDICATION
     Dates: end: 20121227
  10. ZOLOFT [Concomitant]
     Indication: DEPRESSION
     Dates: end: 20121227
  11. PRAVASTATIN [Concomitant]
     Indication: HYPERLIPIDAEMIA
     Route: 048
     Dates: end: 20121227
  12. CALCIUM-VITAMIN D2 [Concomitant]
     Indication: PRODUCT USED FOR UNKNOWN INDICATION
     Route: 048
  13. MULTIVITAMIN [Concomitant]
     Indication: PRODUCT USED FOR UNKNOWN INDICATION
  14. ARANESP [Concomitant]
     Indication: PRODUCT USED FOR UNKNOWN INDICATION
     Route: 058
  15. LACTOBACILLUS ACIDOPHILUS [Concomitant]
     Indication: PRODUCT USED FOR UNKNOWN INDICATION
     Route: 048
     Dates: end: 20121227
  16. PREDNISONE [Concomitant]
     Indication: PRODUCT USED FOR UNKNOWN INDICATION
     Dosage: OR AS DIRECTED
     Route: 048
  17. PREDNISONE [Concomitant]
  18. SERTRALINE [Concomitant]
     Indication: PRODUCT USED FOR UNKNOWN INDICATION
     Route: 048
  19. SERTRALINE [Concomitant]
  20. LEVOFLOXACIN [Concomitant]
     Indication: PRODUCT USED FOR UNKNOWN INDICATION
     Route: 042
  21. MUCOMIST [Concomitant]
     Indication: PRODUCT USED FOR UNKNOWN INDICATION
  22. HYDRALAZINE [Concomitant]
     Indication: PRODUCT USED FOR UNKNOWN INDICATION
  23. ISOTONIC SALINE SOLUTION CARDIAC CATHETERIZATION [Concomitant]
     Indication: PRODUCT USED FOR UNKNOWN INDICATION
  24. ASPIRIN [Concomitant]
     Indication: PRODUCT USED FOR UNKNOWN INDICATION
  25. FERROUS SULFATE [Concomitant]
     Indication: PRODUCT USED FOR UNKNOWN INDICATION
  26. CARVEDILOL [Concomitant]
     Indication: PRODUCT USED FOR UNKNOWN INDICATION
  27. ZOFRAN [Concomitant]
     Indication: PRODUCT USED FOR UNKNOWN INDICATION
  28. COLACE [Concomitant]
     Indication: PRODUCT USED FOR UNKNOWN INDICATION
  29. FLUTICASONE [Concomitant]
     Indication: PRODUCT USED FOR UNKNOWN INDICATION
     Dosage: 2 SPRAYS IN EACH NOSTRIL ONCE DAILY
     Dates: end: 20121227
  30. HEPARIN [Concomitant]
     Indication: PRODUCT USED FOR UNKNOWN INDICATION
  31. SUCRALFATE [Concomitant]
  32. METHOTREXATE [Concomitant]
     Route: 048
  33. PSYLLIUM [Concomitant]
     Indication: PRODUCT USED FOR UNKNOWN INDICATION
  34. QUINAPRIL [Concomitant]
     Indication: PRODUCT USED FOR UNKNOWN INDICATION
     Dosage: 1/2 TABLETS
     Route: 048
  35. RALOXIFENE [Concomitant]
     Indication: PRODUCT USED FOR UNKNOWN INDICATION
     Route: 048
  36. RISEDRONATE [Concomitant]
     Indication: PRODUCT USED FOR UNKNOWN INDICATION
     Route: 048
  37. TRIAMTERENE AND HYDROCHLOROTHIAZID [Concomitant]
     Indication: PRODUCT USED FOR UNKNOWN INDICATION
     Dosage: 37.5-25MG
     Route: 048
  38. VITAMIN E [Concomitant]
     Indication: PRODUCT USED FOR UNKNOWN INDICATION
  39. LOVENOX [Concomitant]
     Indication: PRODUCT USED FOR UNKNOWN INDICATION

REACTIONS (18)
  - Cardiac failure acute [Fatal]
  - Renal failure chronic [Fatal]
  - Cardiomyopathy [Unknown]
  - Anaemia [Unknown]
  - Ejection fraction abnormal [Unknown]
  - Autoimmune thrombocytopenia [Unknown]
  - Pneumonia [Unknown]
  - Mitral valve incompetence [Unknown]
  - Melaena [Unknown]
  - Hypokalaemia [Unknown]
  - Pleural effusion [Unknown]
  - Wheelchair user [Unknown]
  - Injection site pain [Unknown]
  - Abdominal pain upper [Unknown]
  - Cholelithiasis [Unknown]
  - Malnutrition [Unknown]
  - Arthralgia [Unknown]
  - Activities of daily living impaired [Unknown]
